FAERS Safety Report 6998277-1 (Version None)
Quarter: 2010Q3

REPORT INFORMATION
  Report Type: 
  Country: None (occurrence: None)
  Receive Date: 20100920
  Receipt Date: 20100506
  Transmission Date: 20110219
  Serious: No
  Sender: FDA-Public Use
  Company Number: US-ASTRAZENECA-2010SE06462

PATIENT
  Age: 299 Month
  Sex: Female
  Weight: 79.8 kg

DRUGS (5)
  1. SEROQUEL XR [Suspect]
     Indication: BIPOLAR DISORDER
     Route: 048
     Dates: start: 20090801
  2. SEROQUEL XR [Suspect]
     Route: 048
  3. TEGRETOL [Concomitant]
  4. ZYPREXA [Concomitant]
  5. VALIUM [Concomitant]

REACTIONS (2)
  - DRUG INEFFECTIVE [None]
  - NIGHTMARE [None]
